FAERS Safety Report 13634502 (Version 1)
Quarter: 2017Q2

REPORT INFORMATION
  Report Type: Spontaneous
  Country: US (occurrence: US)
  Receive Date: 20170531
  Receipt Date: 20170531
  Transmission Date: 20170830
  Serious: No
  Sender: FDA-Public Use
  Company Number: US-ASTELLAS-1634026

PATIENT
  Age: 58 Year
  Sex: Female

DRUGS (5)
  1. DOXYCYCLINE. [Concomitant]
     Active Substance: DOXYCYCLINE
  2. TARCEVA [Suspect]
     Active Substance: ERLOTINIB HYDROCHLORIDE
     Indication: LUNG NEOPLASM MALIGNANT
     Route: 048
     Dates: start: 20150906
  3. XGEVA [Concomitant]
     Active Substance: DENOSUMAB
  4. VITAMIN C [Concomitant]
     Active Substance: ASCORBIC ACID
  5. LEVOTHYROXINE SODIUM. [Concomitant]
     Active Substance: LEVOTHYROXINE SODIUM

REACTIONS (6)
  - Dry mouth [Unknown]
  - Dizziness [Unknown]
  - Acne [Unknown]
  - Rash [Unknown]
  - Depressed mood [Not Recovered/Not Resolved]
  - Dry skin [Unknown]
